FAERS Safety Report 5021139-6 (Version None)
Quarter: 2006Q2

REPORT INFORMATION
  Report Type: 
  Country: None (occurrence: None)
  Receive Date: 20060605
  Receipt Date: 20060523
  Transmission Date: 20061013
  Serious: Yes (Hospitalization)
  Sender: FDA-Public Use
  Company Number: 2006067382

PATIENT
  Age: 55 Year
  Sex: Male
  Weight: 81.6475 kg

DRUGS (6)
  1. XANAX [Suspect]
     Indication: ANXIETY
     Dosage: (0.25 MG), 0.5 MG (0.5MG, 1 IN 1 D); ORAL
     Dates: start: 19880101
  2. XANAX [Suspect]
     Indication: ANXIETY
     Dosage: (0.25 MG), 0.5 MG (0.5MG, 1 IN 1 D); ORAL
     Dates: start: 20060401
  3. LIPITOR [Suspect]
     Indication: BLOOD CHOLESTEROL INCREASED
     Dosage: 60 MG (60 MG, 1 IN 1 D);
  4. ZOCOR [Suspect]
     Indication: BLOOD CHOLESTEROL INCREASED
  5. STATINS              (HMG COA REDUCTASE INHIBITORS) [Suspect]
     Indication: BLOOD CHOLESTEROL INCREASED
  6. DEXAMFETAMINE [Concomitant]

REACTIONS (11)
  - BALANCE DISORDER [None]
  - BLOOD CHOLESTEROL INCREASED [None]
  - GASTROOESOPHAGEAL REFLUX DISEASE [None]
  - HEARING IMPAIRED [None]
  - HYPERTENSION [None]
  - INNER EAR DISORDER [None]
  - MYALGIA [None]
  - MYOCARDIAL INFARCTION [None]
  - MYOCARDIAL ISCHAEMIA [None]
  - SEDATION [None]
  - SOMNOLENCE [None]
